FAERS Safety Report 4537556-4 (Version None)
Quarter: 2004Q4

REPORT INFORMATION
  Report Type: 
  Country: None (occurrence: None)
  Receive Date: 20041216
  Receipt Date: 20040722
  Transmission Date: 20050328
  Serious: Yes (Other)
  Sender: FDA-Public Use
  Company Number: HQWYE392723JUL04

PATIENT
  Age: 38 Year
  Sex: Female
  Weight: 79.45 kg

DRUGS (6)
  1. EFFEXOR XR [Suspect]
     Dosage: ORAL; SEE IMAGE
     Route: 048
     Dates: start: 20030301, end: 20031001
  2. EFFEXOR XR [Suspect]
     Dosage: ORAL; SEE IMAGE
     Route: 048
     Dates: start: 20031001
  3. KLONOPIN [Concomitant]
  4. CLOZARIL [Concomitant]
  5. PREVACID [Concomitant]
  6. GLUCOPHAGE [Concomitant]

REACTIONS (2)
  - DIZZINESS [None]
  - LOSS OF CONSCIOUSNESS [None]
